FAERS Safety Report 20517304 (Version 1)
Quarter: 2022Q1

REPORT INFORMATION
  Report Type: Spontaneous
  Country: US (occurrence: US)
  Receive Date: 20220225
  Receipt Date: 20220225
  Transmission Date: 20220423
  Serious: No
  Sender: FDA-Public Use
  Company Number: US-RECORDATI RARE DISEASE INC.-2021000734

PATIENT
  Sex: Male

DRUGS (1)
  1. DESOXYN [Suspect]
     Active Substance: METHAMPHETAMINE HYDROCHLORIDE
     Indication: Narcolepsy
     Dosage: UNK
     Route: 065
     Dates: start: 1989

REACTIONS (2)
  - Off label use [Unknown]
  - Product availability issue [Unknown]
